FAERS Safety Report 8791356 (Version 1)
Quarter: 2012Q4

REPORT INFORMATION
  Report Type: Spontaneous
  Country: IT (occurrence: None)
  Receive Date: 20120912
  Receipt Date: 20120912
  Transmission Date: 20130627
  Serious: Yes (Other)
  Sender: FDA-Public Use
  Company Number: FK201202566

PATIENT
  Age: 32 Year
  Sex: Male

DRUGS (2)
  1. AMIODARON HCL [Suspect]
     Indication: PROPHYLAXIS
     Dosage: 300 mg dose infused over 6 hours, Intravenous (not otherwise specified)
     Route: 042
  2. AMIODARON HCL [Suspect]
     Indication: PROPHYLAXIS
     Dosage: 540 mg over the remaining 18 hours, Intravenous (not otherwise specified)
     Route: 042

REACTIONS (1)
  - Electrocardiogram abnormal [None]
